FAERS Safety Report 20481385 (Version 1)
Quarter: 2022Q1

REPORT INFORMATION
  Report Type: Spontaneous
  Country: US (occurrence: US)
  Receive Date: 20220216
  Receipt Date: 20220216
  Transmission Date: 20220423
  Serious: No
  Sender: FDA-Public Use
  Company Number: US-SA-SAC20220210000059

PATIENT
  Age: 14 Year
  Sex: Male

DRUGS (1)
  1. DUPIXENT [Suspect]
     Active Substance: DUPILUMAB
     Dosage: 200MG/1.14ML FREQUENCY OTHER
     Route: 058
     Dates: start: 202111

REACTIONS (2)
  - Pain in extremity [Unknown]
  - Rash [Unknown]

NARRATIVE: CASE EVENT DATE: 20211201
